FAERS Safety Report 16264313 (Version 3)
Quarter: 2019Q3

REPORT INFORMATION
  Report Type: Spontaneous
  Country: US (occurrence: US)
  Receive Date: 20190502
  Receipt Date: 20190802
  Transmission Date: 20191004
  Serious: No
  Sender: FDA-Public Use
  Company Number: US-PFIZER INC-2019183447

PATIENT
  Age: 72 Year
  Sex: Female
  Weight: 79.83 kg

DRUGS (24)
  1. CALCIUM [Concomitant]
     Active Substance: CALCIUM
     Indication: BREAST CANCER
     Dosage: 300 MG, DAILY, (TAKE 300 MG BY MOUTH DAILY. 5 YRS)
     Route: 048
  2. LASIX [Concomitant]
     Active Substance: FUROSEMIDE
     Indication: CARDIAC DISORDER
     Dosage: 20 MG, DAILY, (TAKE 1 TAB BY MOUTH DAILY. 5 YRS)
     Route: 048
  3. ZESTRIL [Concomitant]
     Active Substance: LISINOPRIL
     Indication: CARDIAC DISORDER
     Dosage: 5 MG, DAILY, (TAKE 1 TAB BY MOUTH DAILY. 5 YRS)
     Route: 048
  4. PRINIVIL [Concomitant]
     Active Substance: LISINOPRIL
     Indication: CARDIAC DISORDER
     Dosage: 5 MG, DAILY, (TAKE 1 TAB BY MOUTH DAILY. 5 YRS)
     Route: 048
  5. VITAMIN C [Concomitant]
     Active Substance: ASCORBIC ACID
     Indication: NEOPLASM MALIGNANT
     Dosage: UNK, (TAKE BY MOUTH . 5 YEARS)
     Route: 048
  6. TOPROL XL [Concomitant]
     Active Substance: METOPROLOL SUCCINATE
     Dosage: 25 MG, DAILY, (TAKE 1 TABLET BY MOUTH DAILY 5 YEARS)
     Route: 048
  7. VITAMIN D3 [Concomitant]
     Active Substance: CHOLECALCIFEROL
     Indication: NEOPLASM MALIGNANT
     Dosage: UNK UNK, DAILY, (TAKE 400 UNITS BY MOUTH DAILY . 5 YEARS)
     Route: 048
  8. NEURONTIN [Concomitant]
     Active Substance: GABAPENTIN
     Indication: PAIN
     Dosage: 300 MG, 2X/DAY, (TAKE 300 MG BY MOUTH 2 TIMES DAILY. 5 YRS)
     Route: 048
  9. FEMARA [Concomitant]
     Active Substance: LETROZOLE
     Indication: NEOPLASM MALIGNANT
     Dosage: 2.5 MG, DAILY, (TAKE 1 TAB BY MOUTH DAILY. 5 YRS)
     Route: 048
  10. TIZANIDINE. [Concomitant]
     Active Substance: TIZANIDINE
     Indication: MYALGIA
     Dosage: 2 MG, AS NEEDED, [TWICE DAILY]
  11. ZOMETA [Concomitant]
     Active Substance: ZOLEDRONIC ACID
     Indication: BONE DISORDER
     Dosage: 4 MG, UNK, (4 MG BY INTRAVENOUS ROUTE SEE ADMIN INSTRUCTIONS. FOLLOW STANDING ORDER PROTOCOL 5YEARS)
     Route: 042
  12. ASCORBIC ACID/VITAMIN B COMPLEX [Concomitant]
     Indication: NEOPLASM MALIGNANT
     Dosage: 1 DF, 1X/DAY
     Route: 048
  13. WELLBUTRIN [Concomitant]
     Active Substance: BUPROPION HYDROCHLORIDE
     Indication: DEPRESSION
     Dosage: 300 MG, 1X/DAY, (TAKE 300 MG BY MOUTH EVERY MORNING. 5 YRS)
     Route: 048
  14. MORPHINE [Concomitant]
     Active Substance: MORPHINE
     Indication: PAIN
     Dosage: 1.5 MG, 4X/DAY
     Route: 048
  15. MS IR [Concomitant]
     Active Substance: MORPHINE SULFATE
     Indication: PAIN
     Dosage: 7.5 MG, AS NEEDED, (TAKE 7.5 MG BY MOUTH EVERY 6 HOURS AS NEEDED FOR PAIN)
  16. XARELTO [Concomitant]
     Active Substance: RIVAROXABAN
     Indication: CARDIAC DISORDER
     Dosage: 20 MG, DAILY, (TAKE 1 TABLET BY MOUTH DAILY TAKE WITH FOOD 5 YEARS)
     Route: 048
  17. ZANAFLEX [Concomitant]
     Active Substance: TIZANIDINE HYDROCHLORIDE
     Indication: MYALGIA
     Dosage: 2 MG, AS NEEDED, (TAKE 2 MG BY MOUTH 2 TIMES DAILY AS NEEDED  4 HRS )
     Route: 048
  18. FLECTOR [Suspect]
     Active Substance: DICLOFENAC EPOLAMINE
     Dosage: UNK, 1X/DAY, (PATCH 1 X DAY BACK; 1 X DAY KNEES)
  19. ASPIRIN [ACETYLSALICYLIC ACID] [Concomitant]
     Active Substance: ASPIRIN
     Dosage: 81 MG, DAILY, (TAKE 1 TAB BY MOUTH DAILY. 5 YRS)
     Route: 048
  20. ALLBEE-C [Concomitant]
     Indication: NEOPLASM MALIGNANT
     Dosage: 1 DF, DAILY (TAKE 1 TAB BY MOUTH DAILY 5 YEARS )
     Route: 048
  21. CYMBALTA [Concomitant]
     Active Substance: DULOXETINE HYDROCHLORIDE
     Indication: DEPRESSION
     Dosage: 60 MG, DAILY
     Route: 048
  22. COENZYME Q10 [Concomitant]
     Active Substance: UBIDECARENONE
     Indication: PAIN
     Dosage: 200 MG, DAILY, (TAKE 1 TAB BY MOUTH DAILY. 5 YRS)
     Route: 048
  23. FLECTOR [Suspect]
     Active Substance: DICLOFENAC EPOLAMINE
     Indication: PAIN
     Dosage: 1.3% CUT ONE PATCH IN HALF AND PUT IT WHERE IT HURTS
     Route: 062
     Dates: start: 201904
  24. CORTISONE [Concomitant]
     Active Substance: CORTISONE

REACTIONS (3)
  - Weight decreased [Not Recovered/Not Resolved]
  - Intentional product use issue [Unknown]
  - Arthritis [Not Recovered/Not Resolved]

NARRATIVE: CASE EVENT DATE: 201906
